FAERS Safety Report 11700487 (Version 1)
Quarter: 2015Q4

REPORT INFORMATION
  Report Type: Spontaneous
  Country: IN (occurrence: IN)
  Receive Date: 20151105
  Receipt Date: 20151105
  Transmission Date: 20160304
  Serious: Yes (Other)
  Sender: FDA-Public Use
  Company Number: IN-WATSON-2015-23430

PATIENT
  Age: 53 Year
  Sex: Male

DRUGS (4)
  1. TELMISARTAN (UNKNOWN) [Suspect]
     Active Substance: TELMISARTAN
     Indication: DRUG PROVOCATION TEST
     Dosage: 40 MG, DAILY
     Route: 065
  2. TELMISARTAN (UNKNOWN) [Suspect]
     Active Substance: TELMISARTAN
     Dosage: 20 MG, DAILY
     Route: 065
  3. HYDROCHLOROTHIAZIDE. [Concomitant]
     Active Substance: HYDROCHLOROTHIAZIDE
     Indication: DRUG PROVOCATION TEST
     Dosage: 12.5 MG, DAILY
     Route: 065
  4. HYDROCHLOROTHIAZIDE. [Concomitant]
     Active Substance: HYDROCHLOROTHIAZIDE
     Dosage: 6.25 MG, DAILY
     Route: 065

REACTIONS (1)
  - Hypersensitivity vasculitis [Unknown]
